FAERS Safety Report 4498681-X (Version None)
Quarter: 2004Q4

REPORT INFORMATION
  Report Type: 
  Country: None (occurrence: None)
  Receive Date: 20041108
  Receipt Date: 20041025
  Transmission Date: 20050328
  Serious: Yes (Other)
  Sender: FDA-Public Use
  Company Number: 2004228586USA

PATIENT
  Sex: 0

DRUGS (2)
  1. AROMASIN [Suspect]
  2. ACTONEL [Suspect]
     Indication: OSTEOPOROSIS

REACTIONS (1)
  - OSTEONECROSIS [None]
